FAERS Safety Report 25537494 (Version 2)
Quarter: 2025Q4

REPORT INFORMATION
  Report Type: Report from Study
  Country: US (occurrence: US)
  Receive Date: 20250710
  Receipt Date: 20251003
  Transmission Date: 20260118
  Serious: Yes (Other)
  Sender: ABBVIE
  Company Number: US-ABBVIE-6362416

PATIENT
  Age: 59 Year
  Sex: Female

DRUGS (4)
  1. SKYRIZI [Suspect]
     Active Substance: RISANKIZUMAB-RZAA
     Indication: Psoriasis
     Dosage: TIME INTERVAL: TOTAL: WEEK 0?STRENGTH: 150MG/ML
     Route: 058
     Dates: start: 20250514, end: 20250514
  2. SKYRIZI [Suspect]
     Active Substance: RISANKIZUMAB-RZAA
     Dosage: TIME INTERVAL: TOTAL: WEEK 4, STRENGTH: 150MG/ML
     Route: 058
     Dates: start: 20250614, end: 20250614
  3. SKYRIZI [Suspect]
     Active Substance: RISANKIZUMAB-RZAA
     Dosage: STRENGTH: 150MG/ML, FIRST ADMIN DATE: 2025
     Route: 058
  4. OTEZLA [Concomitant]
     Active Substance: APREMILAST
     Indication: Product used for unknown indication

REACTIONS (5)
  - Nephrostomy [Unknown]
  - Nephrolithiasis [Unknown]
  - Back pain [Unknown]
  - Urinary tract obstruction [Unknown]
  - Psoriasis [Unknown]

NARRATIVE: CASE EVENT DATE: 20250101
